FAERS Safety Report 21020082 (Version 1)
Quarter: 2022Q2

REPORT INFORMATION
  Report Type: Spontaneous
  Country: None (occurrence: FR)
  Receive Date: 20220628
  Receipt Date: 20220628
  Transmission Date: 20220721
  Serious: Yes (Hospitalization)
  Sender: FDA-Public Use
  Company Number: FR-AFSSAPS-AVMP20220210

PATIENT
  Age: 18 Year
  Sex: Female

DRUGS (1)
  1. NITROUS OXIDE [Suspect]
     Active Substance: NITROUS OXIDE
     Indication: Product used for unknown indication
     Route: 055

REACTIONS (3)
  - Paraesthesia [Unknown]
  - Hallucination, visual [Recovering/Resolving]
  - Acute polyneuropathy [Unknown]

NARRATIVE: CASE EVENT DATE: 20220509
